FAERS Safety Report 6612139-0 (Version None)
Quarter: 2010Q1

REPORT INFORMATION
  Report Type: 
  Country: None (occurrence: None)
  Receive Date: 20100302
  Receipt Date: 20100302
  Transmission Date: 20100710
  Serious: Yes (Other)
  Sender: FDA-Public Use
  Company Number: None

PATIENT
  Age: 34 Year
  Sex: Male
  Weight: 136.0791 kg

DRUGS (1)
  1. TRANSDERM SCOP [Suspect]
     Indication: MOTION SICKNESS
     Dosage: 1.5 MG, 1 PATCH EVERY 3 DAYS TRANSDERMAL
     Route: 062
     Dates: start: 20100214, end: 20100226

REACTIONS (4)
  - DIZZINESS [None]
  - HEADACHE [None]
  - MOTION SICKNESS [None]
  - NAUSEA [None]
